FAERS Safety Report 18125894 (Version 1)
Quarter: 2020Q3

REPORT INFORMATION
  Report Type: Spontaneous
  Country: CA (occurrence: CA)
  Receive Date: 20200808
  Receipt Date: 20200808
  Transmission Date: 20201103
  Serious: Yes (Hospitalization)
  Sender: FDA-Public Use
  Company Number: CA-TEVA-2020-CA-1811287

PATIENT
  Age: 80 Year
  Sex: Male

DRUGS (5)
  1. ENTRESTO [Concomitant]
     Active Substance: SACUBITRIL\VALSARTAN
  2. APIXABAN [Concomitant]
     Active Substance: APIXABAN
  3. FUROSEMIDE. [Concomitant]
     Active Substance: FUROSEMIDE
  4. CARVEDILOL. [Suspect]
     Active Substance: CARVEDILOL
     Indication: CARDIAC FAILURE CONGESTIVE
     Route: 048
  5. FERROUS FUMARATE [Concomitant]
     Active Substance: FERROUS FUMARATE

REACTIONS (4)
  - Cardiac failure congestive [Unknown]
  - Hypokalaemia [Unknown]
  - Bradycardia [Unknown]
  - Dyspnoea [Unknown]
